FAERS Safety Report 7925918-4 (Version None)
Quarter: 2011Q4

REPORT INFORMATION
  Report Type: 
  Country: None (occurrence: None)
  Receive Date: 20111118
  Receipt Date: 20110414
  Transmission Date: 20120403
  Serious: No
  Sender: FDA-Public Use
  Company Number: US-AMGEN-USASP2011017099

PATIENT
  Age: 46 Year
  Sex: Female

DRUGS (1)
  1. ENBREL [Suspect]
     Indication: PSORIASIS
     Dosage: 50 MG, QWK
     Dates: start: 20100210

REACTIONS (13)
  - ASTHENIA [None]
  - INJECTION SITE HAEMATOMA [None]
  - INFLUENZA [None]
  - INJECTION SITE VESICLES [None]
  - SINUSITIS [None]
  - PHARYNGITIS STREPTOCOCCAL [None]
  - PAIN [None]
  - PSORIASIS [None]
  - DYSPHAGIA [None]
  - PYREXIA [None]
  - INJECTION SITE MASS [None]
  - SENSATION OF FOREIGN BODY [None]
  - CHILLS [None]
